FAERS Safety Report 8831583 (Version 1)
Quarter: 2012Q4

REPORT INFORMATION
  Report Type: 
  Country: US (occurrence: US)
  Receive Date: 20121009
  Receipt Date: 20121009
  Transmission Date: 20130627
  Serious: No
  Sender: FDA-Public Use
  Company Number: US-ASTRAZENECA-2005UW09168

PATIENT
  Age: 83 Year
  Sex: Male
  Weight: 79.4 kg

DRUGS (13)
  1. SYMBICORT PMDI [Suspect]
     Route: 055
  2. CRESTOR [Suspect]
     Indication: PROPHYLAXIS
     Route: 048
  3. CRESTOR [Suspect]
     Indication: PROPHYLAXIS
     Route: 048
     Dates: start: 200501
  4. COZAAR [Concomitant]
  5. TOPROL XL [Concomitant]
  6. LASIX [Concomitant]
  7. VITAMIN C [Concomitant]
  8. VITAMIN E [Concomitant]
  9. FOLIC ACID [Concomitant]
  10. OCUVITE [Concomitant]
  11. ZAROXOLYN [Concomitant]
  12. ASA [Concomitant]
  13. POTASSIUM [Concomitant]

REACTIONS (2)
  - Blood glucose increased [Unknown]
  - Intentional drug misuse [Unknown]
